FAERS Safety Report 5229274-4 (Version None)
Quarter: 2007Q1

REPORT INFORMATION
  Report Type: 
  Country: None (occurrence: None)
  Receive Date: 20061201
  Receipt Date: 20060807
  Transmission Date: 20070707
  Serious: No
  Sender: FDA-Public Use
  Company Number: US200608001563

PATIENT
  Sex: Female

DRUGS (6)
  1. CYMBALTA [Suspect]
     Dosage: SEE IMAGE
  2. SINEMET /NET/(CARBIDOPA, LEVODOPA) [Concomitant]
  3. GLUCOTROL [Concomitant]
  4. ATIVAN [Concomitant]
  5. VICODIN [Concomitant]
  6. CIPRO [Concomitant]

REACTIONS (4)
  - ASTHENIA [None]
  - DEPRESSED MOOD [None]
  - MOBILITY DECREASED [None]
  - TREMOR [None]
